FAERS Safety Report 21896546 (Version 1)
Quarter: 2023Q1

REPORT INFORMATION
  Report Type: Spontaneous
  Country: US (occurrence: None)
  Receive Date: 20230120
  Receipt Date: 20230120
  Transmission Date: 20230417
  Serious: Yes (Hospitalization)
  Sender: FDA-Public Use
  Company Number: None

PATIENT
  Age: 73 Year
  Sex: Male
  Weight: 89.9 kg

DRUGS (3)
  1. BEVACIZUMAB [Suspect]
     Active Substance: BEVACIZUMAB
     Indication: Glioblastoma multiforme
     Dosage: EVERY 3 WEEKS IV?
     Route: 042
     Dates: start: 20200304
  2. IPILIMUMAB [Suspect]
     Active Substance: IPILIMUMAB
     Indication: Glioblastoma multiforme
     Dosage: EVERY 3 WEEKS  IV?
     Route: 042
     Dates: start: 20200304, end: 20200426
  3. NIVOLUMAB [Suspect]
     Active Substance: NIVOLUMAB

REACTIONS (5)
  - Aspartate aminotransferase increased [None]
  - Alanine aminotransferase increased [None]
  - Blood thyroid stimulating hormone increased [None]
  - Blood alkaline phosphatase increased [None]
  - Blood creatinine increased [None]

NARRATIVE: CASE EVENT DATE: 20200416
